FAERS Safety Report 7081853-8 (Version None)
Quarter: 2010Q4

REPORT INFORMATION
  Report Type: 
  Country: None (occurrence: None)
  Receive Date: 20101103
  Receipt Date: 20101021
  Transmission Date: 20110411
  Serious: Yes (Death, Other)
  Sender: FDA-Public Use
  Company Number: US-AMGEN-QUU408756

PATIENT

DRUGS (9)
  1. NPLATE [Suspect]
     Indication: IDIOPATHIC THROMBOCYTOPENIC PURPURA
     Dosage: 4 A?G/KG, UNK
     Dates: start: 20091111, end: 20100309
  2. NPLATE [Suspect]
     Dates: start: 20090511
  3. CORTICOSTEROID NOS [Concomitant]
     Dosage: UNK UNK, UNK
     Dates: start: 20090417
  4. PREDNISONE [Concomitant]
     Dosage: UNK UNK, UNK
     Dates: start: 20090417
  5. LISINOPRIL [Concomitant]
     Dosage: 40 MG, QD
  6. CHRONDROITAN + GLUCOSAMINE [Concomitant]
  7. MSM [Concomitant]
  8. BICALUTAMIDE [Concomitant]
     Dosage: UNK UNK, UNK
     Dates: start: 20081201
  9. LEUPROLIDE ACETATE [Concomitant]
     Dosage: UNK UNK, UNK
     Dates: start: 20081201

REACTIONS (3)
  - CAROTID ARTERY OCCLUSION [None]
  - CEREBRAL INFARCTION [None]
  - GASTRIC HAEMORRHAGE [None]
